FAERS Safety Report 6590367-0 (Version None)
Quarter: 2010Q2

REPORT INFORMATION
  Report Type: 
  Country: None (occurrence: None)
  Receive Date: 20100219
  Receipt Date: 20100208
  Transmission Date: 20101027
  Serious: Yes (Hospitalization)
  Sender: FDA-Public Use
  Company Number: JP-ROCHE-570935

PATIENT
  Sex: Male
  Weight: 75 kg

DRUGS (59)
  1. AVASTIN [Suspect]
     Indication: RECTAL CANCER METASTATIC
     Dosage: STRENGTH REPORTED: 400 MG/16 ML.
     Route: 041
     Dates: start: 20071003, end: 20071003
  2. AVASTIN [Suspect]
     Route: 041
     Dates: start: 20071017, end: 20071017
  3. AVASTIN [Suspect]
     Route: 041
     Dates: start: 20071031, end: 20071031
  4. AVASTIN [Suspect]
     Route: 041
     Dates: start: 20071114, end: 20071114
  5. AVASTIN [Suspect]
     Route: 041
     Dates: start: 20071128, end: 20071128
  6. AVASTIN [Suspect]
     Route: 041
     Dates: start: 20071212, end: 20071212
  7. AVASTIN [Suspect]
     Route: 041
     Dates: start: 20080422, end: 20080519
  8. OXALIPLATIN [Suspect]
     Indication: RECTAL CANCER METASTATIC
     Route: 041
     Dates: start: 20071003, end: 20071003
  9. OXALIPLATIN [Suspect]
     Route: 041
     Dates: start: 20071017, end: 20071017
  10. OXALIPLATIN [Suspect]
     Route: 041
     Dates: start: 20071031, end: 20071031
  11. OXALIPLATIN [Suspect]
     Route: 041
     Dates: start: 20071114, end: 20071114
  12. OXALIPLATIN [Suspect]
     Route: 041
     Dates: start: 20071128, end: 20071128
  13. OXALIPLATIN [Suspect]
     Route: 041
     Dates: start: 20071212, end: 20071212
  14. OXALIPLATIN [Suspect]
     Route: 041
     Dates: start: 20080422, end: 20080422
  15. OXALIPLATIN [Suspect]
     Route: 041
     Dates: start: 20080507, end: 20080507
  16. OXALIPLATIN [Suspect]
     Route: 041
     Dates: start: 20080519, end: 20080519
  17. FLUOROURACIL [Suspect]
     Indication: RECTAL CANCER METASTATIC
     Dosage: ROUTE: INTRAVENOUS BOLUS
     Route: 042
     Dates: start: 20071003, end: 20071004
  18. FLUOROURACIL [Suspect]
     Dosage: ROUTE REPORTED: INTRAVENOUS DRIP
     Route: 042
     Dates: start: 20071003, end: 20071004
  19. FLUOROURACIL [Suspect]
     Dosage: ROUTE REPORTED: INTRAVENOUS BOLUS
     Route: 042
     Dates: start: 20071017, end: 20071017
  20. FLUOROURACIL [Suspect]
     Dosage: ROUTE REPORTED: INTRAVENOUS DRIP
     Route: 042
     Dates: start: 20071017, end: 20071019
  21. FLUOROURACIL [Suspect]
     Dosage: ROUTE REPORTED: INTRAVENOUS BOLUS
     Route: 042
     Dates: start: 20071031, end: 20071031
  22. FLUOROURACIL [Suspect]
     Dosage: ROUTE REPORTED: INTRAVENOUS DRIP
     Route: 042
     Dates: start: 20071031, end: 20071102
  23. FLUOROURACIL [Suspect]
     Dosage: ROUTE REPORTED: INTRAVENOUS BOLUS
     Route: 042
     Dates: start: 20071114, end: 20071114
  24. FLUOROURACIL [Suspect]
     Dosage: ROUTE REPORTED: INTRAVENOUS DRIP
     Route: 042
     Dates: start: 20071114, end: 20071116
  25. FLUOROURACIL [Suspect]
     Dosage: ROUTE REPORTED: INTRAVENOUS BOLUS
     Route: 042
     Dates: start: 20071128, end: 20071128
  26. FLUOROURACIL [Suspect]
     Dosage: ROUTE REPORTED: INTRAVENOUS DRIP
     Route: 042
     Dates: start: 20071128, end: 20071130
  27. FLUOROURACIL [Suspect]
     Dosage: ROUTE REPORTED: INTRAVENOUS BOLUS
     Route: 042
     Dates: start: 20071212, end: 20071212
  28. FLUOROURACIL [Suspect]
     Dosage: ROUTE REPORTED: INTRAVENOUS DRIP
     Route: 042
     Dates: start: 20071212, end: 20071214
  29. FLUOROURACIL [Suspect]
     Dosage: ROUTE: INTRAVENOUS BOLUS.
     Route: 042
     Dates: start: 20080422, end: 20080422
  30. FLUOROURACIL [Suspect]
     Dosage: ROUTE: INTRAVENOUS DRIP.
     Route: 042
     Dates: start: 20080422, end: 20080424
  31. ISOVORIN [Suspect]
     Indication: RECTAL CANCER METASTATIC
     Route: 041
     Dates: start: 20071003, end: 20071004
  32. ISOVORIN [Suspect]
     Route: 041
     Dates: start: 20071017, end: 20071017
  33. ISOVORIN [Suspect]
     Route: 041
     Dates: start: 20071031, end: 20071031
  34. ISOVORIN [Suspect]
     Route: 041
     Dates: start: 20071114, end: 20071114
  35. ISOVORIN [Suspect]
     Route: 041
     Dates: start: 20071128, end: 20071128
  36. ISOVORIN [Suspect]
     Route: 041
     Dates: start: 20071212, end: 20071212
  37. ISOVORIN [Suspect]
     Indication: RECTAL CANCER METASTATIC
     Route: 041
     Dates: start: 20080422, end: 20080422
  38. ISOVORIN [Suspect]
     Route: 041
     Dates: start: 20080507, end: 20080507
  39. ISOVORIN [Suspect]
     Route: 041
     Dates: end: 20080519
  40. ADALAT CC [Concomitant]
     Dosage: FORM: SUSTAINED RELEASE TABLET
     Route: 048
     Dates: start: 20070910, end: 20071205
  41. RENIVACE [Concomitant]
     Route: 048
     Dates: start: 20070910, end: 20071205
  42. AMARYL [Concomitant]
     Route: 048
     Dates: start: 20070910, end: 20071205
  43. URINORM [Concomitant]
     Route: 048
     Dates: start: 20070910, end: 20071205
  44. LIPITOR [Concomitant]
     Route: 048
     Dates: start: 20070910, end: 20071205
  45. KYTRIL [Concomitant]
     Dosage: DRUG:KYTRIL 3 MG BAG, ROUTE:INTRAVENOUS (NOT OTHERWISE SPECIFIED). EACH COURSE
     Route: 042
     Dates: start: 20071003, end: 20071128
  46. KYTRIL [Concomitant]
     Route: 042
     Dates: start: 20080422, end: 20080422
  47. DECADRON [Concomitant]
     Dosage: EACH COURSE.ROUTE: INTRAVENOUS (NOT OTHERWISE SPECIFIED).
     Route: 042
     Dates: start: 20071003, end: 20071128
  48. DECADRON [Concomitant]
     Route: 042
     Dates: start: 20080422, end: 20080422
  49. DIOVAN [Concomitant]
     Route: 048
     Dates: start: 20071128, end: 20071205
  50. KYTRIL [Concomitant]
     Dosage: EACH COURSE
     Route: 048
     Dates: start: 20071003, end: 20071201
  51. ALDACTONE [Concomitant]
     Route: 048
     Dates: start: 20080226, end: 20080309
  52. ROHYPNOL [Concomitant]
     Route: 048
     Dates: start: 20080226, end: 20080320
  53. LASIX [Concomitant]
     Route: 048
     Dates: start: 20080310, end: 20080520
  54. LASIX [Concomitant]
     Route: 048
     Dates: start: 20080226, end: 20080309
  55. ALDACTONE [Concomitant]
     Route: 048
     Dates: start: 20080310, end: 20080520
  56. CLARITH [Concomitant]
     Route: 048
     Dates: start: 20080321, end: 20080520
  57. THEO-DUR [Concomitant]
     Dosage: FORM: SUSTAINED RELEASE TABLET
     Route: 048
     Dates: start: 20080321, end: 20080520
  58. MUCOSOLVAN [Concomitant]
     Route: 048
     Dates: start: 20080321, end: 20080520
  59. UNASYN [Concomitant]
     Dates: start: 20080503, end: 20080507

REACTIONS (2)
  - INTERSTITIAL LUNG DISEASE [None]
  - RASH [None]
